FAERS Safety Report 14473962 (Version 2)
Quarter: 2018Q1

REPORT INFORMATION
  Report Type: Spontaneous
  Country: JP (occurrence: JP)
  Receive Date: 20180201
  Receipt Date: 20180319
  Transmission Date: 20180509
  Serious: No
  Sender: FDA-Public Use
  Company Number: JP-FERRINGPH-2018FE00414

PATIENT

DRUGS (6)
  1. LUTINUS [Suspect]
     Active Substance: PROGESTERONE
     Indication: ASSISTED FERTILISATION
     Dosage: 100 MG, 3 TIMES DAILY
     Route: 067
     Dates: start: 20170731, end: 20170821
  2. NORDITROPIN [Concomitant]
     Active Substance: SOMATROPIN
     Indication: GROWTH HORMONE DEFICIENCY
     Dosage: UNK
     Route: 058
     Dates: start: 20161104
  3. ESTRANA [Concomitant]
     Active Substance: ESTRADIOL
     Indication: IN VITRO FERTILISATION
     Dosage: 1.44 MG, UNK
     Route: 062
     Dates: start: 20170720, end: 20170821
  4. CALCIUM LACTATE [Concomitant]
     Active Substance: CALCIUM LACTATE
     Dosage: 3 G, UNK
     Route: 048
     Dates: start: 20160624
  5. LUTINUS [Suspect]
     Active Substance: PROGESTERONE
     Indication: PROGESTIN REPLACEMENT THERAPY
  6. ONEALFA [Concomitant]
     Active Substance: ALFACALCIDOL
     Dosage: 2 ?G, UNK
     Route: 048
     Dates: start: 20160624

REACTIONS (6)
  - Pelvic infection [Recovering/Resolving]
  - Menstruation irregular [Recovering/Resolving]
  - Abdominal pain [Recovering/Resolving]
  - Pyrexia [Recovering/Resolving]
  - Back pain [Recovering/Resolving]
  - Vulvovaginal discomfort [Recovering/Resolving]

NARRATIVE: CASE EVENT DATE: 20170807
